FAERS Safety Report 12573090 (Version 1)
Quarter: 2016Q3

REPORT INFORMATION
  Report Type: Spontaneous
  Country: GB (occurrence: None)
  Receive Date: 20160718
  Receipt Date: 20160718
  Transmission Date: 20161109
  Serious: Yes (Other)
  Sender: FDA-Public Use
  Company Number: GB2016K3230SPO

PATIENT
  Age: 26 Year
  Sex: Female
  Weight: 120.65 kg

DRUGS (2)
  1. LANSOPRAZOLE GENERIC (LANSOPRAZOLE) UNKNOWN [Suspect]
     Active Substance: LANSOPRAZOLE
     Indication: GASTROOESOPHAGEAL REFLUX DISEASE
     Route: 048
     Dates: start: 20150101
  2. FLUOXETINE [Suspect]
     Active Substance: FLUOXETINE HYDROCHLORIDE
     Indication: DEPRESSION
     Route: 048
     Dates: start: 20150101

REACTIONS (3)
  - Drug interaction [None]
  - Dyspepsia [None]
  - Pain [None]
